FAERS Safety Report 21663113 (Version 1)
Quarter: 2022Q4

REPORT INFORMATION
  Report Type: Spontaneous
  Country: US (occurrence: None)
  Receive Date: 20221129
  Receipt Date: 20221129
  Transmission Date: 20230113
  Serious: No
  Sender: FDA-Public Use
  Company Number: None

PATIENT
  Age: 61 Year
  Sex: Female

DRUGS (1)
  1. BENLYSTA [Suspect]
     Active Substance: BELIMUMAB
     Dosage: OTHER FREQUENCY : OTHER;?
     Route: 058

REACTIONS (2)
  - Influenza [None]
  - Therapy interrupted [None]

NARRATIVE: CASE EVENT DATE: 20221121
